FAERS Safety Report 9373945 (Version 1)
Quarter: 2013Q2

REPORT INFORMATION
  Report Type: Report from Study
  Country: IT (occurrence: IT)
  Receive Date: 20130628
  Receipt Date: 20130628
  Transmission Date: 20140414
  Serious: Yes (Death)
  Sender: FDA-Public Use
  Company Number: IT-ROCHE-1242604

PATIENT
  Sex: 0

DRUGS (1)
  1. RITUXIMAB [Suspect]
     Indication: EPSTEIN-BARR VIRUS TEST POSITIVE
     Route: 065

REACTIONS (1)
  - Interstitial lung disease [Fatal]
